FAERS Safety Report 12922369 (Version 3)
Quarter: 2020Q4

REPORT INFORMATION
  Report Type: Report from Study
  Country: IT (occurrence: IT)
  Receive Date: 20161108
  Receipt Date: 20201016
  Transmission Date: 20210113
  Serious: Yes (Other)
  Sender: FDA-Public Use
  Company Number: IT-TEVA-695730ACC

PATIENT
  Age: 72 Year
  Sex: Male

DRUGS (3)
  1. LEVOFOLENE - 175 MG POLVERE PER SOLUZIONE PER INFUSIONE [Concomitant]
     Indication: PRODUCT USED FOR UNKNOWN INDICATION
     Route: 042
  2. CALCIUM LEVOFOLINATE PENTAHYDRATE [Suspect]
     Active Substance: LEVOLEUCOVORIN CALCIUM
     Indication: COLON NEOPLASM
     Dosage: 1 DF TOTAL
     Route: 042
     Dates: start: 20160912, end: 20160912
  3. OXALIPLATIN. [Suspect]
     Active Substance: OXALIPLATIN
     Indication: COLON NEOPLASM
     Route: 042
     Dates: start: 20160912, end: 20160912

REACTIONS (5)
  - Dyspnoea [Recovered/Resolved]
  - Hypersensitivity [Recovered/Resolved]
  - Hypotension [Recovered/Resolved]
  - Erythema [Recovered/Resolved]
  - Vomiting [Recovered/Resolved]

NARRATIVE: CASE EVENT DATE: 20160912
